FAERS Safety Report 18082414 (Version 1)
Quarter: 2020Q3

REPORT INFORMATION
  Report Type: Report from Study
  Country: US (occurrence: US)
  Receive Date: 20200728
  Receipt Date: 20200728
  Transmission Date: 20201103
  Serious: Yes (Hospitalization)
  Sender: FDA-Public Use
  Company Number: US-ACTELION-A-US2020-207321

PATIENT
  Sex: Female

DRUGS (1)
  1. OPSUMIT [Suspect]
     Active Substance: MACITENTAN
     Indication: PULMONARY ARTERIAL HYPERTENSION
     Dosage: 10 MG
     Route: 048
     Dates: start: 202006

REACTIONS (9)
  - Dyspnoea [Unknown]
  - Pain in extremity [Unknown]
  - Condition aggravated [Unknown]
  - Asthenia [Unknown]
  - Crying [Unknown]
  - Cough [Unknown]
  - Peripheral swelling [Unknown]
  - Pruritus [Unknown]
  - Insomnia [Unknown]
